FAERS Safety Report 18578599 (Version 1)
Quarter: 2020Q4

REPORT INFORMATION
  Report Type: Spontaneous
  Country: US (occurrence: US)
  Receive Date: 20201204
  Receipt Date: 20201204
  Transmission Date: 20210114
  Serious: Yes (Other)
  Sender: FDA-Public Use
  Company Number: US-ROCHE-2722300

PATIENT
  Sex: Female

DRUGS (1)
  1. XELODA [Suspect]
     Active Substance: CAPECITABINE
     Indication: NEOPLASM
     Dosage: ONGOING: YES
     Route: 048
     Dates: start: 20200801

REACTIONS (3)
  - Intentional product use issue [Unknown]
  - Off label use [Unknown]
  - Neuropathy peripheral [Unknown]
